FAERS Safety Report 19803264 (Version 3)
Quarter: 2021Q4

REPORT INFORMATION
  Report Type: Report from Study
  Country: US (occurrence: US)
  Receive Date: 20210908
  Receipt Date: 20211005
  Transmission Date: 20220303
  Serious: Yes (Hospitalization, Other)
  Sender: FDA-Public Use
  Company Number: US-BIOVITRUM-2021US6622

PATIENT
  Age: 34 Year
  Sex: Female

DRUGS (3)
  1. KINERET [Suspect]
     Active Substance: ANAKINRA
     Indication: Product used for unknown indication
     Route: 058
  2. KINERET [Suspect]
     Active Substance: ANAKINRA
     Route: 058
     Dates: start: 20210602
  3. KINERET [Suspect]
     Active Substance: ANAKINRA
     Route: 058
     Dates: start: 20151209

REACTIONS (10)
  - Cardiac failure [Unknown]
  - Multiple fractures [Unknown]
  - Infection [Unknown]
  - Loss of personal independence in daily activities [Unknown]
  - Fall [Unknown]
  - Bedridden [Unknown]
  - Contusion [Unknown]
  - Hepatic enzyme increased [Recovering/Resolving]
  - Injection site mass [Unknown]
  - Product dose omission issue [Unknown]

NARRATIVE: CASE EVENT DATE: 20210813
